FAERS Safety Report 22254099 (Version 1)
Quarter: 2023Q2

REPORT INFORMATION
  Report Type: Spontaneous
  Country: CN (occurrence: CN)
  Receive Date: 20230426
  Receipt Date: 20230426
  Transmission Date: 20230722
  Serious: Yes (Other)
  Sender: FDA-Public Use
  Company Number: CN-SA-SAC20230423000041

PATIENT
  Age: 23 Year
  Sex: Female
  Weight: 45 kg

DRUGS (2)
  1. ZOLPIDEM TARTRATE [Suspect]
     Active Substance: ZOLPIDEM TARTRATE
     Indication: Completed suicide
     Dosage: 10 DF, QD
     Route: 048
     Dates: start: 20230405, end: 20230405
  2. SERTRALINE HYDROCHLORIDE [Suspect]
     Active Substance: SERTRALINE HYDROCHLORIDE
     Indication: Completed suicide
     Dosage: 10 DF, QD
     Route: 048
     Dates: start: 20230405, end: 20230405

REACTIONS (4)
  - Unresponsive to stimuli [Recovering/Resolving]
  - Intentional overdose [Unknown]
  - Dizziness [Recovering/Resolving]
  - Somnolence [Recovering/Resolving]

NARRATIVE: CASE EVENT DATE: 20230405
